FAERS Safety Report 7860052-3 (Version None)
Quarter: 2011Q4

REPORT INFORMATION
  Report Type: 
  Country: None (occurrence: None)
  Receive Date: 20111025
  Receipt Date: 20111013
  Transmission Date: 20120403
  Serious: Yes (Hospitalization)
  Sender: FDA-Public Use
  Company Number: GB-1188452

PATIENT

DRUGS (1)
  1. AZOPT [Suspect]
     Route: 047

REACTIONS (1)
  - MYOCARDIAL INFARCTION [None]
